FAERS Safety Report 19638102 (Version 1)
Quarter: 2021Q3

REPORT INFORMATION
  Report Type: Spontaneous
  Country: PL (occurrence: PL)
  Receive Date: 20210729
  Receipt Date: 20210729
  Transmission Date: 20211014
  Serious: Yes (Disabling)
  Sender: FDA-Public Use
  Company Number: NVSC2020PL347210

PATIENT
  Age: 41 Year
  Sex: Female

DRUGS (8)
  1. PASSIFLORA [Concomitant]
     Indication: PRODUCT USED FOR UNKNOWN INDICATION
     Dosage: UNK
     Route: 065
  2. MELATONIN [Concomitant]
     Active Substance: MELATONIN
     Indication: PRODUCT USED FOR UNKNOWN INDICATION
     Dosage: UNK
     Route: 065
  3. ZOLPIDEM TARTRATE. [Suspect]
     Active Substance: ZOLPIDEM TARTRATE
     Indication: INSOMNIA
     Dosage: UNK
     Route: 065
  4. MAGNESIUM + B6 [Concomitant]
     Indication: PRODUCT USED FOR UNKNOWN INDICATION
     Dosage: UNK
     Route: 065
  5. QUETIAPINE. [Suspect]
     Active Substance: QUETIAPINE
     Indication: INSOMNIA
     Dosage: 50 MG, UNKNOWN
     Route: 065
  6. ESTAZOLAM. [Suspect]
     Active Substance: ESTAZOLAM
     Indication: INSOMNIA
     Dosage: UNK
     Route: 065
  7. HUMULUS LUPULUS [Concomitant]
     Active Substance: HOPS
     Indication: PRODUCT USED FOR UNKNOWN INDICATION
     Dosage: UNK
     Route: 065
  8. MELISSA OFFICINALIS [Concomitant]
     Active Substance: HERBALS\HOMEOPATHICS\MELISSA OFFICINALIS
     Indication: PRODUCT USED FOR UNKNOWN INDICATION
     Dosage: UNK
     Route: 065

REACTIONS (5)
  - Product use in unapproved indication [Unknown]
  - Dizziness [Unknown]
  - Somnolence [Unknown]
  - Drug ineffective [Unknown]
  - Paradoxical drug reaction [Unknown]
